FAERS Safety Report 9797966 (Version 1)
Quarter: 2014Q1

REPORT INFORMATION
  Report Type: Report from Study
  Country: NL (occurrence: NL)
  Receive Date: 20140106
  Receipt Date: 20140106
  Transmission Date: 20141002
  Serious: Yes (Hospitalization)
  Sender: FDA-Public Use
  Company Number: PHHY2014NL000600

PATIENT
  Sex: Female

DRUGS (4)
  1. ZOMETA [Suspect]
     Indication: BREAST CANCER METASTATIC
     Dosage: 4 MG/100 ML, ONCE EVERY 4 WEEKS
     Route: 042
  2. ZOMETA [Suspect]
     Dosage: 4 MG/100ML, ONCE EVERY 4 WEEKS
     Route: 042
     Dates: start: 20110715
  3. ZOMETA [Suspect]
     Dosage: 4 MG/100 ML, ONCE EVERY 4 WEEKS
     Route: 042
     Dates: start: 20131204
  4. ZOMETA [Suspect]
     Dosage: 4 MG/100 ML,ONCE EVERY 4 WEEKS
     Route: 042
     Dates: start: 20140102

REACTIONS (2)
  - Pneumothorax [Unknown]
  - Dyspnoea [Recovered/Resolved]
